FAERS Safety Report 7105424-X (Version None)
Quarter: 2010Q4

REPORT INFORMATION
  Report Type: 
  Country: None (occurrence: None)
  Receive Date: 20101110
  Receipt Date: 20101022
  Transmission Date: 20110411
  Serious: Yes (Hospitalization, Other)
  Sender: FDA-Public Use
  Company Number: JPI-P-012435

PATIENT
  Age: 64 Year
  Sex: Male

DRUGS (16)
  1. XYREM [Suspect]
     Indication: SLEEP PHASE RHYTHM DISTURBANCE
     Dosage: 6 GM (3 GM, 2 IN 1 D, ORAL, 3.5 GM, 2 IN 1 D, ORAL
     Route: 048
     Dates: start: 20050201
  2. XYREM [Suspect]
     Indication: SLEEP PHASE RHYTHM DISTURBANCE
     Dosage: 6 GM (3 GM, 2 IN 1 D, ORAL, 3.5 GM, 2 IN 1 D, ORAL
     Route: 048
     Dates: start: 20100915
  3. LOVASTATIN [Concomitant]
  4. NIACIN [Concomitant]
  5. ASPIRIN [Concomitant]
  6. NIFEDIPINE [Concomitant]
  7. CITALOPRAM [Concomitant]
  8. QUETIAPINE [Concomitant]
  9. TOPIRAMATE [Concomitant]
  10. SUMATRIPTAN [Concomitant]
  11. MODAFINIL [Concomitant]
  12. LORAZEPAM [Concomitant]
  13. BUTALBITAL AND ACETAMINOPHEN [Concomitant]
  14. SILDENAFIL [Concomitant]
  15. ALENDRONATE SODIUM [Concomitant]
  16. ZOLMITRIPTAN [Concomitant]

REACTIONS (13)
  - ANAEMIA [None]
  - AUTOIMMUNE THYROIDITIS [None]
  - GENERALISED OEDEMA [None]
  - HYPERSOMNIA [None]
  - INFLAMMATION [None]
  - METASTASES TO BLADDER [None]
  - METASTASES TO LYMPH NODES [None]
  - METASTASES TO URINARY TRACT [None]
  - NEUROPATHY PERIPHERAL [None]
  - PAIN [None]
  - PROSTATE CANCER [None]
  - PROSTATIC SPECIFIC ANTIGEN INCREASED [None]
  - RESTLESS LEGS SYNDROME [None]
